FAERS Safety Report 17675836 (Version 2)
Quarter: 2020Q2

REPORT INFORMATION
  Report Type: Report from Study
  Country: DE (occurrence: DE)
  Receive Date: 20200416
  Receipt Date: 20200428
  Transmission Date: 20200714
  Serious: Yes (Hospitalization, Other)
  Sender: FDA-Public Use
  Company Number: DE-AMGEN-DEUNI2020060021

PATIENT
  Age: 22 Year
  Sex: Male
  Weight: 68 kg

DRUGS (7)
  1. ADALIMUMAB [Suspect]
     Active Substance: ADALIMUMAB
     Dosage: 40 MILLIGRAM, QWK
     Route: 065
     Dates: start: 20200116, end: 20200305
  2. BUDESONID [Concomitant]
     Active Substance: BUDESONIDE
     Indication: ENTERITIS
     Dosage: UNK
     Dates: start: 201910
  3. BUDESONID [Concomitant]
     Active Substance: BUDESONIDE
     Indication: ILEAL STENOSIS
  4. PREDNISOLONE. [Concomitant]
     Active Substance: PREDNISOLONE
     Indication: ILEAL STENOSIS
  5. ADALIMUMAB [Suspect]
     Active Substance: ADALIMUMAB
     Dosage: 40 MILLIGRAM, Q2WK
     Route: 065
     Dates: start: 20191114
  6. ADALIMUMAB [Suspect]
     Active Substance: ADALIMUMAB
     Indication: CROHN^S DISEASE
     Dosage: 40 MILLIGRAM, Q2WK
     Route: 065
     Dates: start: 20191031
  7. PREDNISOLONE. [Concomitant]
     Active Substance: PREDNISOLONE
     Indication: ENTERITIS
     Dosage: UNK
     Dates: start: 201910

REACTIONS (2)
  - Terminal ileitis [Recovered/Resolved]
  - Stenosis [Recovered/Resolved]

NARRATIVE: CASE EVENT DATE: 20200330
